FAERS Safety Report 19594434 (Version 2)
Quarter: 2021Q3

REPORT INFORMATION
  Report Type: Report from Study
  Country: US (occurrence: US)
  Receive Date: 20210722
  Receipt Date: 20210824
  Transmission Date: 20211014
  Serious: No
  Sender: FDA-Public Use
  Company Number: US-BIOVITRUM-2021US6417

PATIENT
  Sex: Female

DRUGS (1)
  1. KINERET [Suspect]
     Active Substance: ANAKINRA
     Indication: PRODUCT USED FOR UNKNOWN INDICATION
     Route: 058

REACTIONS (9)
  - Loss of personal independence in daily activities [Unknown]
  - Platelet disorder [Unknown]
  - Product dose omission in error [Unknown]
  - Drug ineffective [Unknown]
  - Pain [Unknown]
  - Influenza [Unknown]
  - White blood cell count decreased [Unknown]
  - Diarrhoea [Unknown]
  - Fatigue [Recovering/Resolving]
